FAERS Safety Report 14107688 (Version 1)
Quarter: 2017Q4

REPORT INFORMATION
  Report Type: Spontaneous
  Country: US (occurrence: None)
  Receive Date: 20171019
  Receipt Date: 20171019
  Transmission Date: 20180321
  Serious: Yes (Other)
  Sender: FDA-Public Use
  Company Number: None

PATIENT
  Age: 55 Year
  Sex: Male
  Weight: 68.04 kg

DRUGS (5)
  1. NORVASC [Concomitant]
     Active Substance: AMLODIPINE BESYLATE
  2. MULTI VITAMIN [Concomitant]
     Active Substance: VITAMINS
  3. REMICADE [Suspect]
     Active Substance: INFLIXIMAB
     Indication: COLITIS ULCERATIVE
     Dates: start: 201510, end: 201706
  4. PROGRAFF [Concomitant]
  5. METROPOLOL [Concomitant]
     Active Substance: METOPROLOL

REACTIONS (6)
  - Systemic lupus erythematosus [None]
  - Alopecia [None]
  - Fatigue [None]
  - Rash [None]
  - Therapy change [None]
  - Pruritus generalised [None]

NARRATIVE: CASE EVENT DATE: 20170606
